FAERS Safety Report 5312459-6 (Version None)
Quarter: 2007Q2

REPORT INFORMATION
  Report Type: 
  Country: None (occurrence: None)
  Receive Date: 20070430
  Receipt Date: 20061206
  Transmission Date: 20071010
  Serious: No
  Sender: FDA-Public Use
  Company Number: 2006UW27118

PATIENT
  Age: 87 Year
  Sex: Male
  Weight: 86.2 kg

DRUGS (8)
  1. NEXIUM [Suspect]
     Indication: FLATULENCE
     Route: 048
     Dates: start: 20061101
  2. METOPROLOL SUCCINATE [Concomitant]
  3. DILTIAZEM [Concomitant]
  4. FOSINOPRIL SODIUM [Concomitant]
  5. DIGOXIN [Concomitant]
  6. BUSPIRONE HCL [Concomitant]
  7. HYDROCHLORIDE [Concomitant]
  8. LIPRAM [Concomitant]

REACTIONS (3)
  - BLOOD PRESSURE [None]
  - HEART RATE INCREASED [None]
  - HEART RATE IRREGULAR [None]
